FAERS Safety Report 21721446 (Version 2)
Quarter: 2025Q4

REPORT INFORMATION
  Report Type: Spontaneous
  Country: CA (occurrence: None)
  Receive Date: 20221213
  Receipt Date: 20251024
  Transmission Date: 20260117
  Serious: No
  Sender: ORION
  Company Number: CA-PFIZER INC-202201359027

PATIENT
  Age: 47 Year
  Sex: Male

DRUGS (14)
  1. METHOTREXATE [Suspect]
     Active Substance: METHOTREXATE
     Indication: Psoriatic arthropathy
     Dosage: 2.5 MG ORAL TABLET (8 TABLET(S) ONCE A WEEK X 3 MTH30) (CHANGE DOSE)
     Dates: start: 2017, end: 2022
  2. CELEBREX [Concomitant]
     Active Substance: CELECOXIB
     Dates: start: 201805
  3. FOLIC ACID [Concomitant]
     Active Substance: FOLIC ACID
     Dosage: (1 TABLET(S) ONCE A WEEKX3 MTH30] [TAKE THE DAY AFTER MT)
  4. INFLECTRA [Concomitant]
     Active Substance: INFLIXIMAB-DYYB
     Indication: Psoriatic arthropathy
     Dosage: Q 0, 2, 6 WEEK, THEN EVERY 8 WEEKS
     Dates: start: 20181107, end: 20200115
  5. INFLECTRA [Concomitant]
     Active Substance: INFLIXIMAB-DYYB
     Dosage: CYCLIC
     Dates: start: 20200317, end: 20201026
  6. INFLECTRA [Concomitant]
     Active Substance: INFLIXIMAB-DYYB
     Dosage: CYCLIC
     Dates: start: 20201222
  7. LEFLUNOMIDE [Concomitant]
     Active Substance: LEFLUNOMIDE
     Dates: start: 201805
  8. METFORMIN [Concomitant]
     Active Substance: METFORMIN HYDROCHLORIDE
     Indication: Diabetes mellitus
     Dates: start: 2021
  9. BETAMETHASONE DIPROPIONATE\CALCIPOTRIENE MONOHYDRATE [Concomitant]
     Active Substance: BETAMETHASONE DIPROPIONATE\CALCIPOTRIENE MONOHYDRATE
     Dosage: DOSE: 50 MCG-0.5 MG/G
  10. ARTHROTEC [Concomitant]
     Active Substance: DICLOFENAC SODIUM\MISOPROSTOL
  11. ARAVA [Concomitant]
     Active Substance: LEFLUNOMIDE
  12. CALCIUM [Concomitant]
     Active Substance: CALCIUM
  13. VITAMIN D [Concomitant]
     Active Substance: VITAMIN D NOS
  14. CORTISONE [Concomitant]
     Active Substance: CORTISONE

REACTIONS (9)
  - Therapeutic response decreased [Unknown]
  - Platelet count decreased [Unknown]
  - Hepatic enzyme increased [Unknown]
  - Arthritis [Unknown]
  - Tendonitis [Recovering/Resolving]
  - Bursitis [Recovering/Resolving]
  - Arthralgia [Unknown]
  - Psoriasis [Not Recovered/Not Resolved]
  - Lymphocyte count increased [Unknown]

NARRATIVE: CASE EVENT DATE: 20170101
